FAERS Safety Report 6508227-X (Version None)
Quarter: 2009Q4

REPORT INFORMATION
  Report Type: 
  Country: None (occurrence: None)
  Receive Date: 20091221
  Receipt Date: 20081222
  Transmission Date: 20100525
  Serious: No
  Sender: FDA-Public Use
  Company Number: US-ASTRAZENECA-2008UW28585

PATIENT
  Age: 72 Year
  Sex: Female

DRUGS (3)
  1. CRESTOR [Suspect]
     Indication: ARTERIOSCLEROSIS
     Route: 048
     Dates: start: 20081208
  2. XANAX [Concomitant]
  3. ATENOLOL [Concomitant]
     Indication: PALPITATIONS

REACTIONS (2)
  - ATRIAL FLUTTER [None]
  - NERVOUSNESS [None]
